FAERS Safety Report 25425289 (Version 1)
Quarter: 2025Q2

REPORT INFORMATION
  Report Type: Spontaneous
  Country: US (occurrence: US)
  Receive Date: 20250611
  Receipt Date: 20250611
  Transmission Date: 20250717
  Serious: No
  Sender: STALLERGENES
  Company Number: US-STALCOR-2025-AER-01068

PATIENT
  Age: 33 Year
  Sex: Female
  Weight: 90.7 kg

DRUGS (60)
  1. WHITE ASH [Suspect]
     Active Substance: FRAXINUS AMERICANA POLLEN
     Indication: Seasonal allergy
     Route: 058
  2. WHITE ASH [Suspect]
     Active Substance: FRAXINUS AMERICANA POLLEN
     Route: 058
     Dates: start: 20221115
  3. RIVER BIRCH POLLEN [Suspect]
     Active Substance: BETULA NIGRA POLLEN
     Indication: Seasonal allergy
     Route: 058
  4. RIVER BIRCH POLLEN [Suspect]
     Active Substance: BETULA NIGRA POLLEN
     Route: 058
     Dates: start: 20221115
  5. RED CEDAR [Suspect]
     Active Substance: JUNIPERUS VIRGINIANA POLLEN
     Indication: Seasonal allergy
     Route: 058
  6. RED CEDAR [Suspect]
     Active Substance: JUNIPERUS VIRGINIANA POLLEN
     Route: 058
     Dates: start: 20221115
  7. EASTERN COTTONWOOD [Suspect]
     Active Substance: POPULUS DELTOIDES POLLEN
     Indication: Seasonal allergy
     Route: 058
  8. EASTERN COTTONWOOD [Suspect]
     Active Substance: POPULUS DELTOIDES POLLEN
     Route: 058
     Dates: start: 20221115
  9. WHITE HICKORY [Suspect]
     Active Substance: CARYA TOMENTOSA POLLEN
     Indication: Seasonal allergy
     Route: 058
  10. WHITE HICKORY [Suspect]
     Active Substance: CARYA TOMENTOSA POLLEN
     Route: 058
     Dates: start: 20221115
  11. MAPLE BOX ELDER POLLEN MIX [Suspect]
     Active Substance: ACER NEGUNDO POLLEN\ACER SACCHARUM POLLEN
     Indication: Seasonal allergy
     Route: 058
  12. MAPLE BOX ELDER POLLEN MIX [Suspect]
     Active Substance: ACER NEGUNDO POLLEN\ACER SACCHARUM POLLEN
     Route: 058
     Dates: start: 20221115
  13. RED MULBERRY [Suspect]
     Active Substance: MORUS RUBRA POLLEN
     Indication: Seasonal allergy
     Route: 058
  14. RED MULBERRY [Suspect]
     Active Substance: MORUS RUBRA POLLEN
     Route: 058
     Dates: start: 20221115
  15. QUERCUS ALBA POLLEN\QUERCUS RUBRA POLLEN\QUERCUS VELUTINA POLLEN [Suspect]
     Active Substance: QUERCUS ALBA POLLEN\QUERCUS RUBRA POLLEN\QUERCUS VELUTINA POLLEN
     Indication: Seasonal allergy
     Route: 058
  16. QUERCUS ALBA POLLEN\QUERCUS RUBRA POLLEN\QUERCUS VELUTINA POLLEN [Suspect]
     Active Substance: QUERCUS ALBA POLLEN\QUERCUS RUBRA POLLEN\QUERCUS VELUTINA POLLEN
     Route: 058
     Dates: start: 20221115
  17. ROUGH PIGWEED [Suspect]
     Active Substance: AMARANTHUS RETROFLEXUS POLLEN
     Indication: Seasonal allergy
     Route: 058
  18. ROUGH PIGWEED [Suspect]
     Active Substance: AMARANTHUS RETROFLEXUS POLLEN
     Route: 058
     Dates: start: 20221115
  19. RAGWEED MIXTURE [Suspect]
     Active Substance: AMBROSIA ARTEMISIIFOLIA POLLEN\AMBROSIA BIDENTATA POLLEN\AMBROSIA PSILOSTACHYA POLLEN\AMBROSIA TRIFI
     Indication: Seasonal allergy
     Route: 058
  20. RAGWEED MIXTURE [Suspect]
     Active Substance: AMBROSIA ARTEMISIIFOLIA POLLEN\AMBROSIA BIDENTATA POLLEN\AMBROSIA PSILOSTACHYA POLLEN\AMBROSIA TRIFI
     Route: 058
     Dates: start: 20221115
  21. AMERICAN SYCAMORE [Suspect]
     Active Substance: PLATANUS OCCIDENTALIS POLLEN
     Indication: Seasonal allergy
     Route: 058
  22. EAST SYCAMORE [Suspect]
     Active Substance: PLATANUS OCCIDENTALIS POLLEN
     Route: 058
     Dates: start: 20221115
  23. CYNODON DACTYLON POLLEN [Suspect]
     Active Substance: CYNODON DACTYLON POLLEN
     Indication: Seasonal allergy
     Route: 058
  24. CYNODON DACTYLON POLLEN [Suspect]
     Active Substance: CYNODON DACTYLON POLLEN
     Route: 058
     Dates: start: 20221115
  25. SORREL/DOCK MIX [Suspect]
     Active Substance: RUMEX ACETOSELLA WHOLE\RUMEX CRISPUS
     Indication: Seasonal allergy
     Route: 058
  26. SORREL/DOCK MIX [Suspect]
     Active Substance: RUMEX ACETOSELLA WHOLE\RUMEX CRISPUS
     Route: 058
     Dates: start: 20221115
  27. DERMATOPHAGOIDES FARINAE\DERMATOPHAGOIDES PTERONYSSINUS [Suspect]
     Active Substance: DERMATOPHAGOIDES FARINAE\DERMATOPHAGOIDES PTERONYSSINUS
     Indication: Dust allergy
     Route: 058
  28. DERMATOPHAGOIDES FARINAE\DERMATOPHAGOIDES PTERONYSSINUS [Suspect]
     Active Substance: DERMATOPHAGOIDES FARINAE\DERMATOPHAGOIDES PTERONYSSINUS
     Route: 058
     Dates: start: 20221115
  29. ENGLISH PLANTAIN [Suspect]
     Active Substance: PLANTAGO LANCEOLATA POLLEN
     Indication: Seasonal allergy
     Route: 058
  30. ENGLISH PLANTAIN [Suspect]
     Active Substance: PLANTAGO LANCEOLATA POLLEN
     Route: 058
     Dates: start: 20221115
  31. HORSE EPITHELIA [Suspect]
     Active Substance: EQUUS CABALLUS SKIN
     Indication: Allergy to animal
     Route: 058
  32. HORSE EPITHELIA [Suspect]
     Active Substance: EQUUS CABALLUS SKIN
     Route: 058
     Dates: start: 20221115
  33. JOHNSON GRASS [Suspect]
     Active Substance: SORGHUM HALEPENSE POLLEN
     Indication: Seasonal allergy
     Route: 058
  34. JOHNSON GRASS [Suspect]
     Active Substance: SORGHUM HALEPENSE POLLEN
     Route: 058
     Dates: start: 20221115
  35. AGROSTIS GIGANTEA POLLEN\DACTYLIS GLOMERATA POLLEN\PHLEUM PRATENSE POL [Suspect]
     Active Substance: AGROSTIS GIGANTEA POLLEN\DACTYLIS GLOMERATA POLLEN\PHLEUM PRATENSE POLLEN\POA PRATENSIS POLLEN
     Indication: Seasonal allergy
     Route: 058
  36. AGROSTIS GIGANTEA POLLEN\DACTYLIS GLOMERATA POLLEN\PHLEUM PRATENSE POL [Suspect]
     Active Substance: AGROSTIS GIGANTEA POLLEN\DACTYLIS GLOMERATA POLLEN\PHLEUM PRATENSE POLLEN\POA PRATENSIS POLLEN
     Route: 058
     Dates: start: 20221115
  37. LAMB QUARTERS [Suspect]
     Active Substance: CHENOPODIUM ALBUM POLLEN
     Indication: Seasonal allergy
     Route: 058
  38. LAMB QUARTERS [Suspect]
     Active Substance: CHENOPODIUM ALBUM POLLEN
     Route: 058
     Dates: start: 20221115
  39. NETTLE [Suspect]
     Active Substance: URTICA DIOICA POLLEN
     Indication: Seasonal allergy
     Route: 058
  40. NETTLE [Suspect]
     Active Substance: URTICA DIOICA POLLEN
     Route: 058
     Dates: start: 20221115
  41. ALTERNARIA [Suspect]
     Active Substance: ALTERNARIA ALTERNATA
     Indication: Seasonal allergy
     Route: 058
  42. ALTERNARIA [Suspect]
     Active Substance: ALTERNARIA ALTERNATA
     Indication: Allergy to animal
     Route: 058
     Dates: start: 20221115
  43. ALTERNARIA [Suspect]
     Active Substance: ALTERNARIA ALTERNATA
     Indication: Dust allergy
  44. ASPERGILLUS FUMIGATUS [Suspect]
     Active Substance: ASPERGILLUS FUMIGATUS
     Indication: Seasonal allergy
     Route: 058
  45. ASPERGILLUS FUMIGATUS [Suspect]
     Active Substance: ASPERGILLUS FUMIGATUS
     Indication: Allergy to animal
     Route: 058
     Dates: start: 20221115
  46. ASPERGILLUS FUMIGATUS [Suspect]
     Active Substance: ASPERGILLUS FUMIGATUS
     Indication: Dust allergy
  47. CAT HAIR [Suspect]
     Active Substance: FELIS CATUS HAIR
     Indication: Allergy to animal
     Route: 058
  48. CAT HAIR [Suspect]
     Active Substance: FELIS CATUS HAIR
     Route: 058
     Dates: start: 20221115
  49. CLADOSPORIUM HERBARUM [Suspect]
     Active Substance: CLADOSPORIUM HERBARUM
     Indication: Dust allergy
     Route: 058
  50. CLADOSPORIUM HERBARUM [Suspect]
     Active Substance: CLADOSPORIUM HERBARUM
     Indication: Seasonal allergy
     Route: 058
     Dates: start: 20221115
  51. CLADOSPORIUM HERBARUM [Suspect]
     Active Substance: CLADOSPORIUM HERBARUM
     Indication: Allergy to animal
  52. CLADOSPORIUM SPHAEROSPERMUM [Suspect]
     Active Substance: CLADOSPORIUM SPHAEROSPERMUM
     Indication: Seasonal allergy
     Route: 058
  53. CLADOSPORIUM SPHAEROSPERMUM [Suspect]
     Active Substance: CLADOSPORIUM SPHAEROSPERMUM
     Indication: Allergy to animal
     Route: 058
     Dates: start: 20221115
  54. CLADOSPORIUM SPHAEROSPERMUM [Suspect]
     Active Substance: CLADOSPORIUM SPHAEROSPERMUM
     Indication: Dust allergy
  55. ALLERGENIC EXTRACT- COCKROACH PERIPLANETA AMERICANA [Suspect]
     Active Substance: ALLERGENIC EXTRACT- COCKROACH PERIPLANETA AMERICANA
     Indication: Seasonal allergy
     Route: 058
  56. ALLERGENIC EXTRACT- COCKROACH PERIPLANETA AMERICANA [Suspect]
     Active Substance: ALLERGENIC EXTRACT- COCKROACH PERIPLANETA AMERICANA
     Indication: Allergy to animal
     Route: 058
     Dates: start: 20221115
  57. ALLERGENIC EXTRACT- COCKROACH PERIPLANETA AMERICANA [Suspect]
     Active Substance: ALLERGENIC EXTRACT- COCKROACH PERIPLANETA AMERICANA
     Indication: Dust allergy
  58. PENICILLIUM CHRYSOGENUM VAR. CHRYSOGENUM [Suspect]
     Active Substance: PENICILLIUM CHRYSOGENUM VAR. CHRYSOGENUM
     Indication: Seasonal allergy
     Route: 058
  59. PENICILLIUM CHRYSOGENUM VAR. CHRYSOGENUM [Suspect]
     Active Substance: PENICILLIUM CHRYSOGENUM VAR. CHRYSOGENUM
     Indication: Allergy to animal
     Route: 058
     Dates: start: 20221115
  60. PENICILLIUM CHRYSOGENUM VAR. CHRYSOGENUM [Suspect]
     Active Substance: PENICILLIUM CHRYSOGENUM VAR. CHRYSOGENUM
     Indication: Dust allergy

REACTIONS (1)
  - Urticaria [Recovered/Resolved]

NARRATIVE: CASE EVENT DATE: 20250304
